FAERS Safety Report 24854102 (Version 2)
Quarter: 2025Q3

REPORT INFORMATION
  Report Type: Spontaneous
  Country: EU (occurrence: EU)
  Receive Date: 20250117
  Receipt Date: 20250809
  Transmission Date: 20251021
  Serious: Yes (Hospitalization, Other)
  Sender: ALEXION PHARMACEUTICALS
  Company Number: EU-ASTRAZENECA-202501GLO013479FR

PATIENT
  Age: 39 Year
  Sex: Female
  Weight: 65 kg

DRUGS (4)
  1. QUETIAPINE FUMARATE [Suspect]
     Active Substance: QUETIAPINE FUMARATE
     Indication: Bipolar disorder
     Dates: start: 20241119, end: 20241219
  2. AMITRIPTYLINE [Suspect]
     Active Substance: AMITRIPTYLINE
     Indication: Bipolar disorder
     Route: 065
     Dates: start: 20241119, end: 20241219
  3. LORMETAZEPAM [Concomitant]
     Active Substance: LORMETAZEPAM
     Indication: Product used for unknown indication
  4. TERALITHE [Concomitant]
     Active Substance: LITHIUM CARBONATE
     Indication: Bipolar disorder

REACTIONS (2)
  - Hepatic cytolysis [Recovering/Resolving]
  - Jaundice [Unknown]

NARRATIVE: CASE EVENT DATE: 20241218
